FAERS Safety Report 7024304-1 (Version None)
Quarter: 2010Q4

REPORT INFORMATION
  Report Type: 
  Country: None (occurrence: None)
  Receive Date: 20101001
  Receipt Date: 20100927
  Transmission Date: 20110411
  Serious: Yes (Life-Threatening)
  Sender: FDA-Public Use
  Company Number: JP-PFIZER INC-2010121836

PATIENT
  Age: 78 Year
  Sex: Male

DRUGS (5)
  1. ZYVOX [Suspect]
     Indication: STAPHYLOCOCCAL INFECTION
     Dosage: 1200 MG, 1X/DAY
     Route: 041
     Dates: start: 20100925, end: 20100926
  2. CEFAZOLIN [Concomitant]
     Route: 041
  3. MEROPENEM [Concomitant]
     Route: 041
  4. BROACT [Concomitant]
     Route: 041
  5. PIPERACILLIN [Concomitant]
     Route: 041

REACTIONS (2)
  - CARDIAC ARREST [None]
  - VENTRICULAR TACHYCARDIA [None]
